FAERS Safety Report 7254690-9 (Version None)
Quarter: 2011Q1

REPORT INFORMATION
  Report Type: 
  Country: None (occurrence: None)
  Receive Date: 20110129
  Receipt Date: 20100406
  Transmission Date: 20110831
  Serious: No
  Sender: FDA-Public Use
  Company Number: US-ABBOTT-10P-163-0636782-00

PATIENT
  Sex: Female
  Weight: 44.492 kg

DRUGS (8)
  1. CARAFATE [Concomitant]
  2. METHOTREXATE [Concomitant]
     Dates: start: 20030301, end: 20090401
  3. OXYGEN [Concomitant]
     Indication: CHRONIC OBSTRUCTIVE PULMONARY DISEASE
  4. ISOSORBIDE DINITRATE [Concomitant]
  5. LIPITOR [Concomitant]
  6. HUMIRA [Suspect]
     Indication: RHEUMATOID ARTHRITIS
     Dates: start: 20030401
  7. NORVASC [Concomitant]
  8. PREDNISONE [Concomitant]

REACTIONS (4)
  - PAIN IN EXTREMITY [None]
  - OEDEMA PERIPHERAL [None]
  - WRONG TECHNIQUE IN DRUG USAGE PROCESS [None]
  - DRUG INEFFECTIVE [None]
